FAERS Safety Report 8499066-1 (Version None)
Quarter: 2012Q3

REPORT INFORMATION
  Report Type: 
  Country: None (occurrence: None)
  Receive Date: 20120710
  Receipt Date: 20120702
  Transmission Date: 20120928
  Serious: Yes (Other)
  Sender: FDA-Public Use
  Company Number: GB-009507513-1207GBR000064

PATIENT

DRUGS (2)
  1. SINGULAIR [Suspect]
     Indication: ASTHMA
     Dosage: 5 MG, UNK
     Route: 048
     Dates: start: 20110301
  2. LEVOTHYROXINE SODIUM [Concomitant]
     Indication: HYPOTHYROIDISM
     Dosage: 25 MICROGRAM, UNK
     Route: 048
     Dates: start: 20110501

REACTIONS (3)
  - ABNORMAL BEHAVIOUR [None]
  - PSYCHOMOTOR HYPERACTIVITY [None]
  - OVERDOSE [None]
